FAERS Safety Report 13792861 (Version 1)
Quarter: 2017Q3

REPORT INFORMATION
  Report Type: Spontaneous
  Country: GB (occurrence: GB)
  Receive Date: 20170726
  Receipt Date: 20170726
  Transmission Date: 20171127
  Serious: Yes (Other)
  Sender: FDA-Public Use
  Company Number: GB-009507513-1707GBR010091

PATIENT
  Age: 23 Year
  Sex: Female
  Weight: 64 kg

DRUGS (2)
  1. LORATADINE. [Concomitant]
     Active Substance: LORATADINE
  2. NEXPLANON [Suspect]
     Active Substance: ETONOGESTREL
     Route: 051
     Dates: start: 20170614

REACTIONS (1)
  - Night sweats [Not Recovered/Not Resolved]
